FAERS Safety Report 24328476 (Version 1)
Quarter: 2024Q3

REPORT INFORMATION
  Report Type: Report from Study
  Country: US (occurrence: US)
  Receive Date: 20240917
  Receipt Date: 20240917
  Transmission Date: 20241017
  Serious: Yes (Other)
  Sender: VERTEX
  Company Number: US-VERTEX PHARMACEUTICALS-2024-014543

PATIENT
  Age: 27 Year
  Sex: Male

DRUGS (16)
  1. SYMDEKO [Suspect]
     Active Substance: IVACAFTOR\TEZACAFTOR
     Indication: Cystic fibrosis
     Dosage: 1 TABLET (100MG TEZACAFTOR/150MG IVACAFTOR AND 150MG IVACAFTOR), BID
     Route: 048
     Dates: start: 20231004
  2. MIRALAX [Concomitant]
     Active Substance: POLYETHYLENE GLYCOL 3350
  3. CREON [Concomitant]
     Active Substance: PANCRELIPASE AMYLASE\PANCRELIPASE LIPASE\PANCRELIPASE PROTEASE
     Dosage: 24000
  4. NYSTATIN [Concomitant]
     Active Substance: NYSTATIN
     Dosage: CREAM
  5. FUROSEMIDE [Concomitant]
     Active Substance: FUROSEMIDE
     Dosage: 20 MG
  6. PREGABALIN [Concomitant]
     Active Substance: PREGABALIN
     Dosage: 100 MG
  7. TRULANCE [Concomitant]
     Active Substance: PLECANATIDE
     Dosage: 3 MG
  8. MOTEGRITY [Concomitant]
     Active Substance: PRUCALOPRIDE SUCCINATE
     Dosage: 2 MG
  9. SODIUM CHLORIDE [Concomitant]
     Active Substance: SODIUM CHLORIDE
     Dosage: 7% NEBULIZER
  10. NAPROXEN [Concomitant]
     Active Substance: NAPROXEN
     Dosage: 500 MG
  11. MILK OF MAGNESIA [Concomitant]
     Active Substance: MAGNESIUM HYDROXIDE
  12. OMEPRAZOLE [Concomitant]
     Active Substance: OMEPRAZOLE
     Dosage: 20 MG
  13. BANOPHEN [Concomitant]
     Active Substance: DIPHENHYDRAMINE HYDROCHLORIDE
     Dosage: 25 MG
  14. RESTASIS [Concomitant]
     Active Substance: CYCLOSPORINE
     Dosage: OPTHALMIC SOLUTION
  15. BISACODYL [Concomitant]
     Active Substance: BISACODYL
     Dosage: 5 MG
  16. MESALAMINE [Concomitant]
     Active Substance: MESALAMINE
     Dosage: 400 MG

REACTIONS (1)
  - Respiratory tract infection [Recovered/Resolved]

NARRATIVE: CASE EVENT DATE: 20240801
